FAERS Safety Report 9689504 (Version 1)
Quarter: 2013Q4

REPORT INFORMATION
  Report Type: Spontaneous
  Country: GB (occurrence: GB)
  Receive Date: 20131114
  Receipt Date: 20131114
  Transmission Date: 20140711
  Serious: Yes (Death, Other)
  Sender: FDA-Public Use
  Company Number: GB-ROCHE-1304092

PATIENT
  Age: 85 Year
  Sex: Female

DRUGS (6)
  1. LUCENTIS [Suspect]
     Indication: AGE-RELATED MACULAR DEGENERATION
     Route: 050
     Dates: start: 20130923
  2. AMLODIN [Concomitant]
  3. ASPIRIN [Concomitant]
  4. PRAVASTATIN [Concomitant]
  5. RANITIDINE [Concomitant]
  6. PARACETAMOL [Concomitant]

REACTIONS (2)
  - Pneumonia aspiration [Fatal]
  - Cerebrovascular disorder [Not Recovered/Not Resolved]
